FAERS Safety Report 8571563-X (Version None)
Quarter: 2012Q3

REPORT INFORMATION
  Report Type: 
  Country: None (occurrence: None)
  Receive Date: 20120806
  Receipt Date: 20120731
  Transmission Date: 20120928
  Serious: Yes (Hospitalization, Other)
  Sender: FDA-Public Use
  Company Number: PHEH2012US014570

PATIENT
  Sex: Female
  Weight: 68.03 kg

DRUGS (20)
  1. TRAMADOL HCL [Concomitant]
     Indication: PAIN
     Dosage: UNK UKN, PRN
     Route: 048
  2. AMLODIPINE [Concomitant]
     Indication: HYPERTENSION
     Dosage: 10 MG, UNK
     Route: 048
  3. LESCOL XL [Concomitant]
     Indication: HYPERLIPIDAEMIA
     Dosage: UNK UKN, UNK
  4. HYDROCODONE BITARTRATE + ACETAMINOPHEN [Concomitant]
     Dosage: 7.5/325 MG
     Route: 048
  5. TAGAMET [Concomitant]
     Indication: GASTROOESOPHAGEAL REFLUX DISEASE
     Dosage: 400 MG, QID
     Route: 048
  6. ESTER-C [Concomitant]
     Dosage: UNK UKN, DAILY
  7. PHAZYME [Concomitant]
     Dosage: 100 MG, PRN
  8. OMEPRAZOLE [Concomitant]
     Dosage: 20 MG, BID
     Route: 048
  9. MIRALAX [Concomitant]
     Indication: CONSTIPATION
     Dosage: 17 G, PRN
  10. ACETAMINOPHEN [Concomitant]
     Dosage: 650 MG, UNK
  11. MYLANTA [Concomitant]
     Dosage: UNK UKN, UNK
  12. RECLAST [Suspect]
     Dosage: 5 MG/100ML, ONCE A YEAR
     Route: 042
     Dates: start: 20120723
  13. NORTRIPTYLINE HCL [Concomitant]
     Indication: PAIN
     Dosage: 8 DF, UNK
     Route: 048
  14. METOPROLOL SUCCINATE [Concomitant]
     Indication: HYPERTENSION
     Dosage: UNK UKN, BID
     Route: 048
  15. COLACE [Concomitant]
     Dosage: UNK UKN, UNK
     Route: 048
  16. CALCIUM W/VITAMIN D NOS [Concomitant]
     Dosage: 500MG/125 IU
     Route: 048
  17. RECLAST [Suspect]
     Indication: OSTEOPOROSIS
     Dosage: 5 MG/100ML, ONCE A YEAR
     Route: 042
     Dates: start: 20110601
  18. ASCORBIC ACID [Concomitant]
     Dosage: UNK UKN, BID
     Route: 048
  19. VITAMIN D [Concomitant]
     Dosage: 400 IU, UNK
     Route: 048
  20. VALIUM [Concomitant]
     Indication: ANXIETY
     Dosage: 1 DF, PRN
     Route: 048

REACTIONS (23)
  - HYPERHIDROSIS [None]
  - KYPHOSIS [None]
  - MICTURITION URGENCY [None]
  - COUGH [None]
  - DYSPNOEA [None]
  - RIB FRACTURE [None]
  - BLOOD PRESSURE INCREASED [None]
  - WHITE BLOOD CELL COUNT INCREASED [None]
  - CHILLS [None]
  - OESOPHAGEAL ULCER [None]
  - OEDEMA PERIPHERAL [None]
  - HYPOXIA [None]
  - BURNING SENSATION [None]
  - MUSCLE STRAIN [None]
  - PYREXIA [None]
  - INFECTION [None]
  - CHEST PAIN [None]
  - SPINAL COMPRESSION FRACTURE [None]
  - HYPOTENSION [None]
  - FEELING ABNORMAL [None]
  - DYSPHAGIA [None]
  - POLLAKIURIA [None]
  - BACK PAIN [None]
